FAERS Safety Report 4867512-8 (Version None)
Quarter: 2005Q4

REPORT INFORMATION
  Report Type: 
  Country: None (occurrence: None)
  Receive Date: 20051222
  Receipt Date: 20051215
  Transmission Date: 20060501
  Serious: Yes (Hospitalization)
  Sender: FDA-Public Use
  Company Number: REM_00175_2005

PATIENT
  Age: 63 Year
  Sex: Female
  Weight: 75.7 kg

DRUGS (10)
  1. REMODULIN [Suspect]
     Indication: PULMONARY HYPERTENSION
     Dosage: 10 NG/KG/MIN CONTINUOUS IV
     Route: 042
     Dates: start: 20051109
  2. ARTHRITIS BAYER TIMED RELEASE ASPIRIN [Concomitant]
  3. SPIRIVA [Concomitant]
  4. PLAVIX [Concomitant]
  5. LUNESTA [Concomitant]
  6. LIPITOR                 /NET/ [Concomitant]
  7. ACETAMINOPHEN [Concomitant]
  8. ALBUTEROL [Concomitant]
  9. OXYGEN [Concomitant]
  10. AMBIEN [Concomitant]

REACTIONS (5)
  - ALOPECIA [None]
  - ARTHRALGIA [None]
  - PAIN IN EXTREMITY [None]
  - SKIN EXFOLIATION [None]
  - VESSEL PUNCTURE SITE HAEMORRHAGE [None]
